FAERS Safety Report 17449506 (Version 2)
Quarter: 2020Q2

REPORT INFORMATION
  Report Type: Report from Study
  Country: US (occurrence: US)
  Receive Date: 20200224
  Receipt Date: 20200603
  Transmission Date: 20200713
  Serious: Yes (Hospitalization, Other)
  Sender: FDA-Public Use
  Company Number: US-GLAXOSMITHKLINE-US2020GSK027226

PATIENT
  Sex: Female
  Weight: 92.97 kg

DRUGS (1)
  1. ROLAPITANT HYDROCHLORIDE [Suspect]
     Active Substance: ROLAPITANT
     Indication: OVARIAN CANCER
     Dosage: 180 MG, PRN
     Dates: start: 201911

REACTIONS (2)
  - Malaise [Unknown]
  - Loss of consciousness [Unknown]
